FAERS Safety Report 9636595 (Version 1)
Quarter: 2013Q4

REPORT INFORMATION
  Report Type: Spontaneous
  Country: LT (occurrence: LT)
  Receive Date: 20131021
  Receipt Date: 20131021
  Transmission Date: 20140711
  Serious: Yes (Life-Threatening)
  Sender: FDA-Public Use
  Company Number: LT-ROCHE-1286923

PATIENT
  Age: 69 Year
  Sex: Female

DRUGS (2)
  1. CLONAZEPAM [Suspect]
     Indication: SUICIDE ATTEMPT
     Dosage: 12- 30 TABLETS
     Route: 048
     Dates: start: 20130918, end: 20130918
  2. LEXOTANIL [Suspect]
     Indication: SUICIDE ATTEMPT
     Dosage: ABOUT 4 TABLETS
     Route: 048
     Dates: start: 20130918, end: 20130918

REACTIONS (4)
  - Intentional overdose [Unknown]
  - Loss of consciousness [Recovered/Resolved]
  - Renal failure [Not Recovered/Not Resolved]
  - Anaemia [Not Recovered/Not Resolved]
